FAERS Safety Report 22653126 (Version 1)
Quarter: 2023Q2

REPORT INFORMATION
  Report Type: Spontaneous
  Country: JP (occurrence: JP)
  Receive Date: 20230629
  Receipt Date: 20230629
  Transmission Date: 20230722
  Serious: Yes (Other)
  Sender: FDA-Public Use
  Company Number: JP-UCBJ-CD202212689UCBPHAPROD

PATIENT
  Age: 40 Year
  Sex: Female
  Weight: 96.3 kg

DRUGS (3)
  1. CIMZIA [Suspect]
     Active Substance: CERTOLIZUMAB PEGOL
     Indication: Rheumatoid arthritis
     Dosage: UNK
     Route: 058
  2. FOLIC ACID [Suspect]
     Active Substance: FOLIC ACID
     Indication: Product used for unknown indication
     Dosage: UNK
     Route: 048
     Dates: end: 20221003
  3. BUFFERIN [Suspect]
     Active Substance: ASPIRIN
     Indication: Gestational hypertension
     Dosage: UNK
     Route: 048
     Dates: start: 20220608, end: 20221219

REACTIONS (3)
  - Gestational diabetes [Recovering/Resolving]
  - Maternal exposure during pregnancy [Unknown]
  - Maternal exposure during breast feeding [Unknown]

NARRATIVE: CASE EVENT DATE: 20220625
